FAERS Safety Report 5915527-0 (Version None)
Quarter: 2008Q4

REPORT INFORMATION
  Report Type: 
  Country: None (occurrence: None)
  Receive Date: 20081010
  Receipt Date: 20080624
  Transmission Date: 20090506
  Serious: No
  Sender: FDA-Public Use
  Company Number: A0734540A

PATIENT
  Age: 43 Year
  Sex: Female

DRUGS (5)
  1. TYKERB [Suspect]
     Indication: BREAST CANCER
     Dosage: 1250MG PER DAY
     Route: 048
     Dates: start: 20080619
  2. XELODA [Concomitant]
  3. SEROQUEL [Concomitant]
  4. ROBAXIN [Concomitant]
  5. CELEXA [Concomitant]

REACTIONS (3)
  - DYSPEPSIA [None]
  - FATIGUE [None]
  - NAUSEA [None]
